FAERS Safety Report 19447889 (Version 1)
Quarter: 2021Q2

REPORT INFORMATION
  Report Type: Report from Study
  Country: None (occurrence: IL)
  Receive Date: 20210622
  Receipt Date: 20210622
  Transmission Date: 20210717
  Serious: Yes (Death, Other)
  Sender: FDA-Public Use
  Company Number: IL-ABBVIE-20K-082-3347424-00

PATIENT
  Age: 80 Year
  Sex: Male
  Weight: 77 kg

DRUGS (35)
  1. VENCLEXTA [Suspect]
     Active Substance: VENETOCLAX
     Dosage: MODIFICATION TO THE DAILY DOSE
     Route: 048
     Dates: start: 20200127, end: 20200213
  2. VENCLEXTA [Suspect]
     Active Substance: VENETOCLAX
     Route: 048
     Dates: start: 20200419, end: 20200510
  3. VENCLEXTA [Suspect]
     Active Substance: VENETOCLAX
     Route: 048
     Dates: start: 20200816, end: 20200906
  4. HYDREA [Suspect]
     Active Substance: HYDROXYUREA
     Indication: ACUTE MYELOID LEUKAEMIA
     Route: 048
     Dates: start: 20200116, end: 20200116
  5. NEOBLOC [Concomitant]
     Indication: CARDIAC DISORDER
     Dates: start: 20200116
  6. VENCLEXTA [Suspect]
     Active Substance: VENETOCLAX
     Route: 048
     Dates: start: 20200712, end: 20200802
  7. VENCLEXTA [Suspect]
     Active Substance: VENETOCLAX
     Route: 048
     Dates: start: 20200816, end: 20200906
  8. VENCLEXTA [Suspect]
     Active Substance: VENETOCLAX
     Route: 048
     Dates: start: 20200929
  9. AZACITIDINE. [Suspect]
     Active Substance: AZACITIDINE
     Dosage: CYCLE 2
     Route: 058
     Dates: start: 20200315, end: 20200323
  10. FOSAVANCE [Concomitant]
     Active Substance: ALENDRONATE SODIUM\CHOLECALCIFEROL
     Indication: OSTEOPOROSIS
  11. AZACITIDINE. [Suspect]
     Active Substance: AZACITIDINE
     Indication: ACUTE MYELOID LEUKAEMIA
     Dosage: CYCLE 1
     Route: 058
     Dates: start: 20200213, end: 20200219
  12. CYTARABINE. [Suspect]
     Active Substance: CYTARABINE
     Indication: ACUTE MYELOID LEUKAEMIA
     Route: 042
     Dates: start: 20201001, end: 20201007
  13. LIPITOR [Concomitant]
     Active Substance: ATORVASTATIN CALCIUM
     Indication: CARDIOVASCULAR EVENT PROPHYLAXIS
     Dates: start: 2016
  14. VENCLEXTA [Suspect]
     Active Substance: VENETOCLAX
     Dosage: RAMP UP
     Route: 048
     Dates: start: 20200118, end: 20200118
  15. VENCLEXTA [Suspect]
     Active Substance: VENETOCLAX
     Route: 048
     Dates: start: 20200214, end: 20200306
  16. VENCLEXTA [Suspect]
     Active Substance: VENETOCLAX
     Route: 048
     Dates: start: 20200322, end: 20200412
  17. VENCLEXTA [Suspect]
     Active Substance: VENETOCLAX
     Route: 048
     Dates: start: 20200614, end: 20200705
  18. CALTRATE [Concomitant]
     Active Substance: CALCIUM CARBONATE
     Indication: BLOOD PHOSPHORUS INCREASED
  19. CARDILOC [Concomitant]
     Active Substance: BISOPROLOL FUMARATE
     Indication: CARDIAC DISORDER
     Dates: start: 2016
  20. CIPRODEX [Concomitant]
     Active Substance: CIPROFLOXACIN HYDROCHLORIDE\DEXAMETHASONE
     Indication: PROPHYLAXIS
     Dates: start: 20200130
  21. GASTRO [Concomitant]
     Indication: HYPERCHLORHYDRIA
     Dates: start: 20200116
  22. PROCOR [Concomitant]
     Indication: ATRIAL FLUTTER
     Dates: start: 20200217
  23. VENCLEXTA [Suspect]
     Active Substance: VENETOCLAX
     Dosage: RAMP UP
     Route: 048
     Dates: start: 20200119, end: 20200126
  24. GEMTUZUMAB OZOGAMICIN [Suspect]
     Active Substance: GEMTUZUMAB OZOGAMICIN
     Indication: ACUTE MYELOID LEUKAEMIA
     Route: 042
     Dates: start: 20201007, end: 20201007
  25. ARANESP PREFIL [Concomitant]
     Indication: ANAEMIA
  26. BETACORTEN [Concomitant]
     Indication: RASH
  27. OMNIC [Concomitant]
     Active Substance: TAMSULOSIN HYDROCHLORIDE
     Indication: BENIGN PROSTATIC HYPERPLASIA
  28. ALDORIL [Concomitant]
     Active Substance: HYDROCHLOROTHIAZIDE\METHYLDOPA
     Indication: PROPHYLAXIS
     Dates: start: 20200116, end: 20200130
  29. VENCLEXTA [Suspect]
     Active Substance: VENETOCLAX
     Route: 048
     Dates: start: 20200517, end: 20200607
  30. TAZOCIN [Concomitant]
     Active Substance: PIPERACILLIN SODIUM\TAZOBACTAM SODIUM
     Indication: PNEUMONIA
     Dates: start: 20200105, end: 20200129
  31. ASPIRIN CARDIO [Concomitant]
     Active Substance: ASPIRIN
     Indication: CARDIAC DISORDER
     Dates: start: 2016
  32. CLEXANE [Concomitant]
     Active Substance: ENOXAPARIN SODIUM
     Indication: CARDIOVASCULAR EVENT PROPHYLAXIS
     Dates: start: 20200211
  33. FOSRENOL [Concomitant]
     Active Substance: LANTHANUM CARBONATE
     Indication: HYPERPHOSPHATAEMIA
     Dates: start: 20200221
  34. VENCLEXTA [Suspect]
     Active Substance: VENETOCLAX
     Indication: ACUTE MYELOID LEUKAEMIA
     Dosage: RAMP UP
     Route: 048
     Dates: start: 20200117, end: 20200117
  35. VENCLEXTA [Suspect]
     Active Substance: VENETOCLAX
     Dosage: MODIFICATION TO THE DAILY DOSE
     Route: 048
     Dates: start: 20200213, end: 20200213

REACTIONS (19)
  - Hypoalbuminaemia [Recovered/Resolved]
  - Pharyngitis [Recovered/Resolved]
  - Angina pectoris [Recovered/Resolved]
  - Chest pain [Recovered/Resolved]
  - Diarrhoea [Recovered/Resolved]
  - Atrial flutter [Recovered/Resolved]
  - Angina pectoris [Recovered/Resolved]
  - Chills [Recovered/Resolved]
  - Hyperkalaemia [Recovered/Resolved]
  - Epistaxis [Recovered/Resolved]
  - Disease progression [Fatal]
  - Anal incontinence [Not Recovered/Not Resolved]
  - Tumour lysis syndrome [Unknown]
  - Hypomagnesaemia [Recovered/Resolved]
  - Oropharyngeal pain [Not Recovered/Not Resolved]
  - Oedema peripheral [Not Recovered/Not Resolved]
  - Angina pectoris [Recovered/Resolved]
  - Hyperkalaemia [Recovered/Resolved]
  - Constipation [Recovered/Resolved]

NARRATIVE: CASE EVENT DATE: 2020
